FAERS Safety Report 5838655-7 (Version None)
Quarter: 2008Q3

REPORT INFORMATION
  Report Type: 
  Country: None (occurrence: None)
  Receive Date: 20080808
  Receipt Date: 20080804
  Transmission Date: 20090109
  Serious: Yes (Hospitalization, Other)
  Sender: FDA-Public Use
  Company Number: US-MERCK-0705USA04139

PATIENT
  Age: 66 Year
  Sex: Female

DRUGS (2)
  1. FOSAMAX [Suspect]
     Indication: OSTEOPOROSIS
     Route: 048
     Dates: start: 20041001, end: 20060601
  2. FOSAMAX [Suspect]
     Route: 048
     Dates: start: 20040101, end: 20060601

REACTIONS (24)
  - ANXIETY DISORDER [None]
  - ARTHRALGIA [None]
  - BACK PAIN [None]
  - BLOOD URINE [None]
  - CERVICOBRACHIAL SYNDROME [None]
  - DIZZINESS [None]
  - DRUG HYPERSENSITIVITY [None]
  - FATIGUE [None]
  - GASTROINTESTINAL DISORDER [None]
  - GINGIVAL INFECTION [None]
  - HYPERLIPIDAEMIA [None]
  - INSOMNIA [None]
  - MUSCULOSKELETAL PAIN [None]
  - MYALGIA [None]
  - NOCTURIA [None]
  - OSTEONECROSIS [None]
  - OVERDOSE [None]
  - PERIARTHRITIS [None]
  - PYREXIA [None]
  - TOOTH DISORDER [None]
  - TOOTH LOSS [None]
  - TRIGGER FINGER [None]
  - URINE ANALYSIS ABNORMAL [None]
  - WEIGHT DECREASED [None]
